FAERS Safety Report 6582316-6 (Version None)
Quarter: 2010Q1

REPORT INFORMATION
  Report Type: 
  Country: None (occurrence: None)
  Receive Date: 20100216
  Receipt Date: 20100209
  Transmission Date: 20100710
  Serious: Yes (Hospitalization)
  Sender: FDA-Public Use
  Company Number: US-KINGPHARMUSA00001-K201000150

PATIENT
  Age: 61 Year
  Sex: Female
  Weight: 76.19 kg

DRUGS (5)
  1. EMBEDA [Suspect]
     Indication: BACK PAIN
     Dosage: 20 MG, BID
     Dates: start: 20100101, end: 20100101
  2. AMITRIPTYLINE HCL [Concomitant]
  3. WELLBUTRIN [Concomitant]
  4. KLONOPIN [Concomitant]
  5. CYMBALTA [Concomitant]

REACTIONS (3)
  - CONFUSIONAL STATE [None]
  - PSYCHOTIC DISORDER [None]
  - URINARY RETENTION [None]
